FAERS Safety Report 9819502 (Version 2)
Quarter: 2014Q2

REPORT INFORMATION
  Report Type: Not Available
  Country: SE (occurrence: SE)
  Receive Date: 20140115
  Receipt Date: 20140409
  Transmission Date: 20141212
  Serious: Yes (Other)
  Sender: FDA-Public Use
  Company Number: SE-NAPPMUNDI-GBR-2014-0016865

PATIENT
  Sex: 0

DRUGS (9)
  1. OXYCONTIN DEPOTTABLETIT [Suspect]
     Indication: PAIN
     Dosage: UNK
     Route: 048
  2. OXYNORM [Suspect]
     Indication: PAIN
     Route: 048
  3. OXYNORM [Suspect]
     Dates: start: 201312, end: 201312
  4. PANOCOD [Suspect]
     Indication: PAIN
     Route: 048
  5. PANOCOD [Suspect]
     Dosage: UNK
     Route: 048
  6. PANOCOD [Suspect]
     Dates: start: 201312, end: 201312
  7. WARAN [Concomitant]
  8. PARACETAMOL [Concomitant]
     Indication: PAIN
  9. ARCOXIA [Concomitant]
     Dosage: 60 MG, DAILY

REACTIONS (2)
  - Hallucination [Recovered/Resolved]
  - Agitation [Recovered/Resolved]
